FAERS Safety Report 5369397-2 (Version None)
Quarter: 2007Q2

REPORT INFORMATION
  Report Type: 
  Country: None (occurrence: None)
  Receive Date: 20070625
  Receipt Date: 20070502
  Transmission Date: 20071010
  Serious: No
  Sender: FDA-Public Use
  Company Number: US-ASTRAZENECA-2007UW07336

PATIENT
  Age: 39 Year
  Sex: Male

DRUGS (3)
  1. CRESTOR [Suspect]
     Indication: BLOOD CHOLESTEROL
     Route: 048
     Dates: start: 20040101, end: 20070101
  2. NAPROSYN [Concomitant]
     Indication: ARTHRITIS
     Route: 048
     Dates: start: 20000728
  3. PREVACID [Concomitant]
     Indication: REFLUX OESOPHAGITIS
     Route: 048
     Dates: start: 20050901

REACTIONS (3)
  - CHROMATURIA [None]
  - MYALGIA [None]
  - URINE ODOUR ABNORMAL [None]
